FAERS Safety Report 15443846 (Version 1)
Quarter: 2018Q3

REPORT INFORMATION
  Report Type: Spontaneous
  Country: RO (occurrence: RO)
  Receive Date: 20180928
  Receipt Date: 20180928
  Transmission Date: 20181010
  Serious: Yes (Death)
  Sender: FDA-Public Use
  Company Number: RO-PFIZER INC-2018388601

PATIENT
  Age: 59 Year
  Sex: Male
  Weight: 100 kg

DRUGS (1)
  1. SUTENT [Suspect]
     Active Substance: SUNITINIB MALATE
     Indication: RENAL CANCER METASTATIC
     Dosage: 50 MG, UNK
     Dates: start: 201601

REACTIONS (1)
  - Death [Fatal]

NARRATIVE: CASE EVENT DATE: 20180827
